FAERS Safety Report 5682752-6 (Version None)
Quarter: 2008Q1

REPORT INFORMATION
  Report Type: 
  Country: None (occurrence: None)
  Receive Date: 20080326
  Receipt Date: 20080326
  Transmission Date: 20080703
  Serious: Yes (Hospitalization)
  Sender: FDA-Public Use
  Company Number: None

PATIENT
  Age: 75 Year
  Sex: Female
  Weight: 115 kg

DRUGS (11)
  1. AMIODARONE HCL [Suspect]
     Indication: ATRIAL FIBRILLATION
     Dosage: 200MG DAILY PO
     Route: 048
  2. POTASSIUM CHLORIDE [Concomitant]
  3. COMBIVENT [Concomitant]
  4. LATANOPROST OPTH [Concomitant]
  5. CYANACOBALAMIN [Concomitant]
  6. ALBUTEROL [Concomitant]
  7. WARFARIN SODIUM [Concomitant]
  8. FUROSEMIDE [Concomitant]
  9. LOSARTAN POTASSIUM [Concomitant]
  10. PAROXETINE HCL [Concomitant]
  11. ARIMIDEX [Concomitant]

REACTIONS (6)
  - BRAIN NATRIURETIC PEPTIDE INCREASED [None]
  - DRUG TOXICITY [None]
  - DYSPNOEA [None]
  - ELECTROCARDIOGRAM ABNORMAL [None]
  - ELECTROCARDIOGRAM Q WAVE ABNORMAL [None]
  - FIBROSIS [None]
